FAERS Safety Report 24068948 (Version 16)
Quarter: 2025Q1

REPORT INFORMATION
  Report Type: Report from Study
  Country: MX (occurrence: MX)
  Receive Date: 20240710
  Receipt Date: 20250107
  Transmission Date: 20250409
  Serious: Yes (Hospitalization, Other)
  Sender: NOVARTIS
  Company Number: MX-002147023-NVSC2024MX136476

PATIENT
  Sex: Female
  Weight: 81 kg

DRUGS (23)
  1. KISQALI [Suspect]
     Active Substance: RIBOCICLIB
     Indication: Breast cancer
     Dosage: 3 DF/ TABLETS OF 200 MG, QD
     Route: 048
     Dates: start: 20240216
  2. KISQALI [Suspect]
     Active Substance: RIBOCICLIB
     Indication: Metastases to bone
     Dosage: 600 MG (3X 200 MG), QD 21 DAYS AND RESTS 7
     Route: 048
     Dates: start: 20240219
  3. KISQALI [Suspect]
     Active Substance: RIBOCICLIB
     Dosage: 600 MG (3X 200 MG), QD (3 DF (200  MG)
     Route: 048
     Dates: start: 202402
  4. KISQALI [Suspect]
     Active Substance: RIBOCICLIB
     Dosage: 600 (3 X 200) MG, QD, AT NIGHT
     Route: 048
     Dates: end: 202405
  5. KISQALI [Suspect]
     Active Substance: RIBOCICLIB
     Dosage: 600 MG (3X 200 MG), QD 21 DAYS AND RESTS 7
     Route: 048
     Dates: start: 202405
  6. KISQALI [Suspect]
     Active Substance: RIBOCICLIB
     Dosage: 3 DOSAGE FORM, QD
     Route: 048
  7. KISQALI [Suspect]
     Active Substance: RIBOCICLIB
     Dosage: 600 MG (3X 200 MG), QD
     Route: 048
     Dates: end: 20241227
  8. KISQALI [Suspect]
     Active Substance: RIBOCICLIB
     Dosage: 1 DOSAGE FORM (200 MG), QD
     Route: 048
  9. LETROZOLE [Suspect]
     Active Substance: LETROZOLE
     Indication: Breast cancer
     Dosage: 1 DOSAGE FORM, QD
     Route: 048
     Dates: start: 202108, end: 20240219
  10. ZOLEDRONIC ACID [Concomitant]
     Active Substance: ZOLEDRONIC ACID
     Indication: Breast cancer
     Dosage: 1 DOSAGE FORM, QMO
     Route: 042
     Dates: start: 20240219
  11. ZOLEDRONIC ACID [Concomitant]
     Active Substance: ZOLEDRONIC ACID
     Indication: Bone cancer
  12. ZOLEDRONIC ACID [Concomitant]
     Active Substance: ZOLEDRONIC ACID
     Indication: Metastases to bone
  13. FULVESTRANT [Concomitant]
     Active Substance: FULVESTRANT
     Indication: Breast cancer
     Dosage: 1 DOSAGE FORM, QMO
     Route: 030
     Dates: start: 20240219
  14. FULVESTRANT [Concomitant]
     Active Substance: FULVESTRANT
     Dosage: 2 DOSAGE FORM, QMO
     Route: 042
     Dates: start: 202402
  15. METFORMIN HYDROCHLORIDE [Concomitant]
     Active Substance: METFORMIN HYDROCHLORIDE
     Indication: Diabetes mellitus
     Dosage: 800 MG, QD (1 TABLET) SINCE 3 YEARS
     Route: 065
  16. METFORMIN HYDROCHLORIDE [Concomitant]
     Active Substance: METFORMIN HYDROCHLORIDE
     Dosage: 850 MG, QD (STARTED 3 YEARS AGO)
     Route: 048
  17. LEVOTHYROXINE [Concomitant]
     Active Substance: LEVOTHYROXINE
     Indication: Hypothyroidism
     Dosage: 100 MG, QD (1 TABLET) SINCE 10 YEARS
     Route: 048
  18. CHLORTHALIDONE [Concomitant]
     Active Substance: CHLORTHALIDONE
     Indication: Fluid retention
     Dosage: 25 MG, QD (HALF OF 50 MG) SINCE 6 YEARS
     Route: 048
  19. ACETAMINOPHEN\TRAMADOL [Concomitant]
     Active Substance: ACETAMINOPHEN\TRAMADOL
     Indication: Pain
     Dosage: 150 MG, QD (1 TABLET DAILY OR WHEN REQUIRED TWICE DAILY)
     Route: 048
  20. ACETAMINOPHEN\TRAMADOL [Concomitant]
     Active Substance: ACETAMINOPHEN\TRAMADOL
     Route: 048
  21. PREGABALIN [Concomitant]
     Active Substance: PREGABALIN
     Indication: Pain
     Dosage: 75 MG, QD
     Route: 048
     Dates: start: 2021
  22. LOSARTAN [Concomitant]
     Active Substance: LOSARTAN
     Indication: Hypertension
     Dosage: 100 MG, QD (1 TABLET)
     Route: 048
     Dates: start: 2012
  23. CELECOXIB [Concomitant]
     Active Substance: CELECOXIB
     Indication: Pain
     Route: 048

REACTIONS (87)
  - Dehydration [Recovered/Resolved]
  - Metastases to bone [Unknown]
  - Gastrointestinal haemorrhage [Recovered/Resolved]
  - Diarrhoea haemorrhagic [Recovered/Resolved]
  - Asphyxia [Not Recovered/Not Resolved]
  - Choking [Not Recovered/Not Resolved]
  - Cellulitis [Recovering/Resolving]
  - Metastasis [Unknown]
  - Malignant neoplasm progression [Unknown]
  - Breast cancer [Unknown]
  - Infertility female [Not Recovered/Not Resolved]
  - Diarrhoea [Unknown]
  - Fatigue [Recovered/Resolved]
  - Vomiting [Recovered/Resolved]
  - Dysstasia [Recovered/Resolved]
  - Fear of eating [Recovering/Resolving]
  - Parosmia [Not Recovered/Not Resolved]
  - Lacrimation increased [Not Recovered/Not Resolved]
  - Feeding disorder [Recovering/Resolving]
  - Platelet count decreased [Not Recovered/Not Resolved]
  - Haemoglobin decreased [Not Recovered/Not Resolved]
  - Breast fibrosis [Not Recovered/Not Resolved]
  - Blood urine present [Recovered/Resolved]
  - Gastrointestinal disorder [Unknown]
  - Constipation [Recovering/Resolving]
  - Gait disturbance [Not Recovered/Not Resolved]
  - Anxiety [Unknown]
  - Peripheral swelling [Not Recovered/Not Resolved]
  - Hypoaesthesia [Recovering/Resolving]
  - Haemorrhoids [Unknown]
  - Inflammation [Unknown]
  - Bone pain [Not Recovered/Not Resolved]
  - Erythema [Recovering/Resolving]
  - Joint stiffness [Recovering/Resolving]
  - Asthenia [Unknown]
  - Blood pressure decreased [Recovered/Resolved]
  - Pulmonary mass [Unknown]
  - Fatigue [Not Recovered/Not Resolved]
  - Food aversion [Not Recovered/Not Resolved]
  - Musculoskeletal stiffness [Not Recovered/Not Resolved]
  - Discouragement [Not Recovered/Not Resolved]
  - Depressed mood [Not Recovered/Not Resolved]
  - Feeling of despair [Not Recovered/Not Resolved]
  - Weight decreased [Not Recovered/Not Resolved]
  - Skin mass [Unknown]
  - Skin lesion [Unknown]
  - Cheilitis [Unknown]
  - Haemorrhage [Recovered/Resolved]
  - Lip haemorrhage [Unknown]
  - Skin haemorrhage [Unknown]
  - Aphthous ulcer [Recovering/Resolving]
  - Ulcer haemorrhage [Unknown]
  - Pain in extremity [Recovered/Resolved]
  - Stomatitis [Unknown]
  - Skin exfoliation [Unknown]
  - Pruritus [Unknown]
  - Emotional disorder [Unknown]
  - Nausea [Recovered/Resolved]
  - Vomiting [Recovered/Resolved]
  - Herpes virus infection [Unknown]
  - Acne [Unknown]
  - Wound [Unknown]
  - Localised infection [Unknown]
  - Limb discomfort [Unknown]
  - Pain [Unknown]
  - Dry skin [Unknown]
  - Phlebitis [Unknown]
  - Skin fissures [Unknown]
  - Nail disorder [Unknown]
  - Onychoclasis [Recovering/Resolving]
  - Oral discomfort [Recovered/Resolved]
  - Appetite disorder [Recovering/Resolving]
  - Palatal disorder [Unknown]
  - Somnolence [Unknown]
  - Skin discolouration [Unknown]
  - Fall [Unknown]
  - Pain in extremity [Unknown]
  - Scab [Recovering/Resolving]
  - Vomiting [Unknown]
  - Red blood cell count decreased [Unknown]
  - Liver disorder [Unknown]
  - Nausea [Unknown]
  - Weight increased [Unknown]
  - Cough [Unknown]
  - Decreased immune responsiveness [Unknown]
  - Ill-defined disorder [Unknown]
  - Drug ineffective [Unknown]

NARRATIVE: CASE EVENT DATE: 20240101
